FAERS Safety Report 9468700 (Version 2)
Quarter: 2013Q4

REPORT INFORMATION
  Report Type: Spontaneous
  Country: US (occurrence: None)
  Receive Date: 20130814
  Receipt Date: 20131010
  Transmission Date: 20140711
  Serious: Yes (Other)
  Sender: FDA-Public Use
  Company Number: 2013RN000012

PATIENT
  Sex: Male

DRUGS (2)
  1. ZOVIRAX [Suspect]
  2. ADVAIR [Concomitant]
     Dosage: 250/5
     Dates: start: 200902

REACTIONS (1)
  - Meningitis [None]
